FAERS Safety Report 20144258 (Version 1)
Quarter: 2021Q4

REPORT INFORMATION
  Report Type: Other
  Country: SA (occurrence: None)
  Receive Date: 20211203
  Receipt Date: 20211203
  Transmission Date: 20220303
  Serious: Yes (Death)
  Sender: FDA-Public Use
  Company Number: SA-ROCHE-2968834

PATIENT
  Age: 63 Year
  Sex: Female

DRUGS (2)
  1. CAPECITABINE [Suspect]
     Active Substance: CAPECITABINE
     Indication: Adenocarcinoma
     Route: 065
  2. OXALIPLATIN [Suspect]
     Active Substance: OXALIPLATIN
     Indication: Adenocarcinoma
     Route: 065

REACTIONS (1)
  - Disease progression [Fatal]
